FAERS Safety Report 10171411 (Version 1)
Quarter: 2014Q2

REPORT INFORMATION
  Report Type: Spontaneous
  Country: US (occurrence: None)
  Receive Date: 20140513
  Receipt Date: 20140513
  Transmission Date: 20141212
  Serious: Yes (Life-Threatening, Hospitalization)
  Sender: FDA-Public Use
  Company Number: None

PATIENT
  Age: 35 Year
  Sex: Male

DRUGS (1)
  1. RENACIDIN [Suspect]
     Indication: PRODUCT USED FOR UNKNOWN INDICATION
     Dosage: 60 ML/HR, CONTINUOUS, TOPICAL
     Route: 061
     Dates: end: 20140309

REACTIONS (18)
  - Apnoea [None]
  - Neuromyopathy [None]
  - Hypermagnesaemia [None]
  - Haemodialysis [None]
  - Iatrogenic injury [None]
  - Respiratory arrest [None]
  - Aspiration [None]
  - Unresponsive to stimuli [None]
  - Bladder perforation [None]
  - Haematuria [None]
  - Acute respiratory distress syndrome [None]
  - Septic shock [None]
  - Pleural effusion [None]
  - Renal failure acute [None]
  - Thrombosis in device [None]
  - Impaired gastric emptying [None]
  - Nasogastric output high [None]
  - Pseudomonas test positive [None]
